FAERS Safety Report 8082604-0 (Version None)
Quarter: 2012Q1

REPORT INFORMATION
  Report Type: 
  Country: None (occurrence: None)
  Receive Date: 20120127
  Receipt Date: 20110223
  Transmission Date: 20120608
  Serious: No
  Sender: FDA-Public Use
  Company Number: US-ABBOTT-11P-163-0707179-00

PATIENT
  Age: 75 Year
  Sex: Female

DRUGS (13)
  1. ATACAN [Concomitant]
     Indication: CARDIAC DISORDER
     Dosage: 16-125MG
  2. ATACAN [Concomitant]
     Indication: HYPERTENSION
  3. PLAVIX [Concomitant]
     Indication: CARDIAC DISORDER
  4. ASPIRIN [Concomitant]
     Indication: PRODUCT USED FOR UNKNOWN INDICATION
  5. METHOTREXATE [Concomitant]
     Indication: PRODUCT USED FOR UNKNOWN INDICATION
  6. CENTRUM ULTRA WOMENS [Concomitant]
     Indication: PRODUCT USED FOR UNKNOWN INDICATION
  7. PREDNISONE TAB [Concomitant]
     Indication: PRODUCT USED FOR UNKNOWN INDICATION
  8. SYNTHROID [Concomitant]
     Indication: THYROID DISORDER
  9. MEFORMIN [Concomitant]
     Indication: DIABETES MELLITUS
  10. LIPITOR [Concomitant]
     Indication: BLOOD CHOLESTEROL
  11. FOLIC ACID [Concomitant]
     Indication: PRODUCT USED FOR UNKNOWN INDICATION
  12. HUMIRA [Suspect]
     Indication: RHEUMATOID ARTHRITIS
     Dates: start: 20110209
  13. HUMULIN R [Concomitant]
     Indication: DIABETES MELLITUS
     Dosage: INSULIN

REACTIONS (1)
  - INJECTION SITE PAIN [None]
